FAERS Safety Report 10201759 (Version 2)
Quarter: 2014Q2

REPORT INFORMATION
  Report Type: Spontaneous
  Country: US (occurrence: US)
  Receive Date: 20140528
  Receipt Date: 20140528
  Transmission Date: 20141212
  Serious: No
  Sender: FDA-Public Use
  Company Number: US-BRISTOL-MYERS SQUIBB COMPANY-19084334

PATIENT
  Age: 47 Year
  Sex: Female

DRUGS (3)
  1. METFORMIN HCL [Suspect]
  2. ADDERALL [Suspect]
  3. EICOSAPENTAENOIC ACID ETHYL ESTER [Suspect]

REACTIONS (3)
  - Tremor [Unknown]
  - Blood pressure increased [Unknown]
  - Heart rate increased [Unknown]
